FAERS Safety Report 7883372-5 (Version None)
Quarter: 2011Q4

REPORT INFORMATION
  Report Type: 
  Country: None (occurrence: None)
  Receive Date: 20111102
  Receipt Date: 20111102
  Transmission Date: 20120403
  Serious: Yes (Other)
  Sender: FDA-Public Use
  Company Number: None

PATIENT
  Age: 59 Year
  Sex: Female
  Weight: 71.214 kg

DRUGS (2)
  1. PRISTIQ [Suspect]
     Indication: DEPRESSION
     Dosage: 30 MG
     Route: 048
     Dates: start: 20110901, end: 20111031
  2. PRISTIQ [Concomitant]

REACTIONS (4)
  - SYNCOPE [None]
  - NAUSEA [None]
  - PARAESTHESIA [None]
  - BALANCE DISORDER [None]
